FAERS Safety Report 19123289 (Version 2)
Quarter: 2021Q2

REPORT INFORMATION
  Report Type: Spontaneous
  Country: NO (occurrence: NO)
  Receive Date: 20210412
  Receipt Date: 20210427
  Transmission Date: 20210717
  Serious: Yes (Disabling)
  Sender: FDA-Public Use
  Company Number: NO-PFIZER INC-2021364166

PATIENT
  Age: 42 Year
  Sex: Female

DRUGS (3)
  1. ALBYL?E [Concomitant]
     Active Substance: ASPIRIN\MAGNESIUM OXIDE
     Indication: THROMBOSIS
     Dosage: 75 MILLIGRAM, QD
     Route: 048
  2. SOMAC [Suspect]
     Active Substance: PANTOPRAZOLE SODIUM
     Indication: GASTROOESOPHAGEAL SPHINCTER INSUFFICIENCY
     Dosage: 40 MILLIGRAM, QD
     Route: 048
     Dates: start: 200811, end: 20081219
  3. SOMAC [Suspect]
     Active Substance: PANTOPRAZOLE SODIUM
     Indication: GASTROOESOPHAGEAL REFLUX DISEASE

REACTIONS (5)
  - Migraine [Unknown]
  - Migraine with aura [Recovering/Resolving]
  - Malaise [Unknown]
  - Chest discomfort [Unknown]
  - Headache [Unknown]

NARRATIVE: CASE EVENT DATE: 20081218
